FAERS Safety Report 4366233-8 (Version None)
Quarter: 2004Q2

REPORT INFORMATION
  Report Type: 
  Country: None (occurrence: None)
  Receive Date: 20040527
  Receipt Date: 20040429
  Transmission Date: 20050107
  Serious: No
  Sender: FDA-Public Use
  Company Number: US-BRISTOL-MYERS SQUIBB COMPANY-12575197

PATIENT

DRUGS (1)
  1. DEFINITY [Suspect]

REACTIONS (4)
  - BACK PAIN [None]
  - FLUSHING [None]
  - OXYGEN SATURATION DECREASED [None]
  - RENAL PAIN [None]
